FAERS Safety Report 8104773-6 (Version None)
Quarter: 2012Q1

REPORT INFORMATION
  Report Type: 
  Country: None (occurrence: None)
  Receive Date: 20120201
  Receipt Date: 20120126
  Transmission Date: 20120608
  Serious: Yes (Hospitalization, Other)
  Sender: FDA-Public Use
  Company Number: DE-ABBOTT-12P-062-0898289-00

PATIENT
  Sex: Female

DRUGS (5)
  1. ALENDRON [Concomitant]
     Indication: OSTEOPOROSIS
     Route: 048
     Dates: start: 19950101, end: 20110101
  2. HUMIRA [Suspect]
     Dates: start: 20111202
  3. LYRICA [Concomitant]
     Indication: MIGRAINE
     Route: 048
     Dates: start: 20100101
  4. HUMIRA [Suspect]
     Indication: RHEUMATOID ARTHRITIS
     Route: 058
     Dates: start: 20061201, end: 20111012
  5. PREDNISOLONE [Concomitant]
     Indication: RHEUMATOID ARTHRITIS
     Route: 048
     Dates: start: 19950101

REACTIONS (1)
  - FOOT DEFORMITY [None]
